FAERS Safety Report 11485326 (Version 3)
Quarter: 2015Q4

REPORT INFORMATION
  Report Type: Report from Study
  Country: NL (occurrence: NL)
  Receive Date: 20150909
  Receipt Date: 20151012
  Transmission Date: 20160304
  Serious: Yes (Hospitalization)
  Sender: FDA-Public Use
  Company Number: NL-GLAXOSMITHKLINE-NL2015GSK127282

PATIENT
  Age: 59 Year
  Sex: Female

DRUGS (7)
  1. BENZYLPENICILLIN [Concomitant]
     Active Substance: PENICILLIN G
     Dosage: UNK, CYC
     Dates: start: 20141107
  2. TRAMETINIB [Suspect]
     Active Substance: TRAMETINIB
     Dosage: 1 UNK, UNK
  3. HYDROCORTISONE ACETATE CREAM [Concomitant]
     Dosage: 4 MG, UNK
     Dates: start: 20150723
  4. TRAMETINIB [Suspect]
     Active Substance: TRAMETINIB
     Indication: NON-SMALL CELL LUNG CANCER
     Dosage: 1.5 MG, QD
     Route: 048
     Dates: start: 20150108
  5. CLEMASTINE [Concomitant]
     Active Substance: CLEMASTINE
     Dosage: 1 MG, UNK
     Dates: start: 20150812
  6. TYKERB [Suspect]
     Active Substance: LAPATINIB DITOSYLATE
     Indication: NON-SMALL CELL LUNG CANCER
     Dosage: 750 MG, 1D
     Route: 048
     Dates: start: 20150108
  7. CLOBETASOL CREAM [Concomitant]
     Active Substance: CLOBETASOL
     Dosage: 0.5 MG, UNK
     Dates: start: 20150812

REACTIONS (1)
  - Folliculitis [Recovering/Resolving]

NARRATIVE: CASE EVENT DATE: 20150903
